FAERS Safety Report 4325373-X (Version None)
Quarter: 2004Q1

REPORT INFORMATION
  Report Type: 
  Country: None (occurrence: None)
  Receive Date: 20040324
  Receipt Date: 20040309
  Transmission Date: 20041129
  Serious: Yes (Other)
  Sender: FDA-Public Use
  Company Number: AU-JNJFOC-20040304059

PATIENT
  Age: 93 Year
  Sex: Female

DRUGS (4)
  1. TRAMADOL HCL [Suspect]
     Indication: DRUG USE FOR UNKNOWN INDICATION
     Dosage: 50 MG, INTRAVENOUS
     Route: 042
     Dates: start: 20001012, end: 20001012
  2. ACETAMINOPHEN [Concomitant]
  3. HEPARIN [Concomitant]
  4. VOLTAREN [Concomitant]

REACTIONS (3)
  - SALIVARY HYPERSECRETION [None]
  - SKIN DISCOLOURATION [None]
  - TREMOR [None]
